FAERS Safety Report 6378109-5 (Version None)
Quarter: 2009Q3

REPORT INFORMATION
  Report Type: 
  Country: None (occurrence: None)
  Receive Date: 20090925
  Receipt Date: 20090922
  Transmission Date: 20100115
  Serious: Yes (Death)
  Sender: FDA-Public Use
  Company Number: CA-MERCK-0909CAN00067

PATIENT

DRUGS (3)
  1. CANCIDAS [Suspect]
     Route: 042
  2. AMPHOTERICIN B [Concomitant]
     Route: 065
  3. ITRACONAZOLE [Concomitant]
     Route: 065

REACTIONS (1)
  - FUNGAL INFECTION [None]
